FAERS Safety Report 4739010-3 (Version None)
Quarter: 2005Q3

REPORT INFORMATION
  Report Type: 
  Country: None (occurrence: None)
  Receive Date: 20050801
  Receipt Date: 20041115
  Transmission Date: 20060218
  Serious: Yes (Hospitalization)
  Sender: FDA-Public Use
  Company Number: 140720USA

PATIENT
  Age: 40 Year
  Sex: Female
  Weight: 61.2356 kg

DRUGS (2)
  1. METOCLOPRAMIDE [Suspect]
     Indication: VOMITING
     Dosage: 10 MILLIGRAM TID ORAL
     Route: 048
     Dates: start: 20040701, end: 20040815
  2. PRENATAL VITAMINS [Concomitant]

REACTIONS (2)
  - INSOMNIA [None]
  - TACHYCARDIA [None]
